FAERS Safety Report 8737755 (Version 2)
Quarter: 2013Q1

REPORT INFORMATION
  Report Type: Report from Study
  Country: JP (occurrence: JP)
  Receive Date: 20120822
  Receipt Date: 20130114
  Transmission Date: 20140127
  Serious: Yes (Hospitalization, Other)
  Sender: FDA-Public Use
  Company Number: JP-009507513-1208JPN006905

PATIENT
  Age: 65 Year
  Sex: Male
  Weight: 61 kg

DRUGS (7)
  1. PEGINTRON [Suspect]
     Indication: CHRONIC HEPATITIS C
     Dosage: 1.5 MICROGRAM PER KILOGRAM, QW
     Route: 058
     Dates: start: 20120117, end: 20120221
  2. REBETOL [Suspect]
     Indication: CHRONIC HEPATITIS C
     Dosage: 800 MG, ONCE
     Route: 048
     Dates: start: 20120117, end: 20120206
  3. REBETOL [Suspect]
     Dosage: 400 MG, QD
     Route: 048
     Dates: start: 20120207, end: 20120213
  4. REBETOL [Suspect]
     Dosage: 200 MG, QD
     Route: 048
     Dates: start: 20120214, end: 20120228
  5. TELAVIC [Suspect]
     Indication: CHRONIC HEPATITIS C
     Dosage: 2250 MG, ONCE
     Route: 048
     Dates: start: 20120117, end: 20120228
  6. ZYLORIC [Suspect]
     Indication: ADVERSE EVENT
     Dosage: 100 MG, ONCE
     Route: 048
     Dates: start: 20120131, end: 20120306
  7. MAGMITT [Concomitant]
     Indication: CONSTIPATION
     Dosage: 330MG/DAY, AS NEEDED
     Route: 048
     Dates: start: 20120214, end: 20120507

REACTIONS (9)
  - Rash [Recovered/Resolved with Sequelae]
  - Anaemia [Not Recovered/Not Resolved]
  - Pyrexia [Not Recovered/Not Resolved]
  - Stomatitis [Not Recovered/Not Resolved]
  - Drug reaction with eosinophilia and systemic symptoms [Recovered/Resolved]
  - Hyperuricaemia [None]
  - Lymphadenopathy [None]
  - Local swelling [None]
  - Urine output decreased [None]
